FAERS Safety Report 21694109 (Version 4)
Quarter: 2024Q3

REPORT INFORMATION
  Report Type: Spontaneous
  Country: DK (occurrence: DK)
  Receive Date: 20221207
  Receipt Date: 20240718
  Transmission Date: 20241017
  Serious: Yes (Other)
  Sender: CELLTRION
  Company Number: DK-CELLTRION INC.-2022DK020330

PATIENT

DRUGS (4)
  1. RITUXIMAB [Suspect]
     Active Substance: RITUXIMAB
     Indication: Relapsing-remitting multiple sclerosis
     Dosage: RECEIVED 5 DOSES OF RITUXIMAB/ONE DOSE EVERY 6 MONTHS
  2. RITUXIMAB [Suspect]
     Active Substance: RITUXIMAB
     Dosage: 5 DOSES, EVERY 6 MONTH
  3. RITUXIMAB [Suspect]
     Active Substance: RITUXIMAB
     Dosage: 1 DOSE EVERY 6 MONTHS (5 DOSES)
  4. RITUXIMAB [Suspect]
     Active Substance: RITUXIMAB
     Dosage: 5 DOSAGE FORM 6 MONTHS (5 DOSES)
     Route: 065

REACTIONS (4)
  - Vulvovaginal disorder [Recovering/Resolving]
  - Vulvovaginal inflammation [Recovered/Resolved]
  - Vaginal infection [Recovered/Resolved]
  - Off label use [Unknown]
